FAERS Safety Report 19136319 (Version 1)
Quarter: 2021Q2

REPORT INFORMATION
  Report Type: Spontaneous
  Country: GB (occurrence: GB)
  Receive Date: 20210414
  Receipt Date: 20210414
  Transmission Date: 20210717
  Serious: Yes (Life-Threatening, Hospitalization, Other)
  Sender: FDA-Public Use
  Company Number: GB-JNJFOC-20210415013

PATIENT
  Age: 15 Year
  Sex: Female
  Weight: 78 kg

DRUGS (4)
  1. FERROUS GLUCONATE [Concomitant]
     Active Substance: FERROUS GLUCONATE
     Indication: ILL-DEFINED DISORDER
  2. TOPAMAX [Suspect]
     Active Substance: TOPIRAMATE
     Indication: ILL-DEFINED DISORDER
     Dosage: 50 MG DAILY ..SIDE EFFECT HAPPENED WHEN TRYING TO INCREASE TO 75MG DAILY
     Route: 048
     Dates: start: 20191114
  3. TOPAMAX [Suspect]
     Active Substance: TOPIRAMATE
     Indication: MIGRAINE
  4. TOPAMAX [Suspect]
     Active Substance: TOPIRAMATE
     Indication: INTRACRANIAL PRESSURE INCREASED

REACTIONS (2)
  - Suicidal ideation [Recovering/Resolving]
  - Personality change [Recovering/Resolving]
